FAERS Safety Report 8594409-2 (Version None)
Quarter: 2012Q3

REPORT INFORMATION
  Report Type: 
  Country: None (occurrence: None)
  Receive Date: 20120815
  Receipt Date: 20120808
  Transmission Date: 20120928
  Serious: No
  Sender: FDA-Public Use
  Company Number: US-BIOGENIDEC-2012BI015231

PATIENT
  Sex: Female

DRUGS (3)
  1. AVONEX [Suspect]
     Indication: MULTIPLE SCLEROSIS
     Route: 030
     Dates: start: 20090101, end: 20090401
  2. AVONEX [Suspect]
     Route: 030
     Dates: start: 20120404
  3. MOTRIN [Concomitant]
     Indication: PREMEDICATION

REACTIONS (10)
  - BACK DISORDER [None]
  - CONTUSION [None]
  - MUSCULOSKELETAL STIFFNESS [None]
  - PAIN [None]
  - EYE IRRITATION [None]
  - MOBILITY DECREASED [None]
  - FATIGUE [None]
  - MUSCLE SPASMS [None]
  - NECK PAIN [None]
  - ARTHRALGIA [None]
